FAERS Safety Report 7022968-X (Version None)
Quarter: 2010Q3

REPORT INFORMATION
  Report Type: 
  Country: None (occurrence: None)
  Receive Date: 20100930
  Receipt Date: 20100921
  Transmission Date: 20110219
  Serious: Yes (Other)
  Sender: FDA-Public Use
  Company Number: US-PFIZER INC-2010119741

PATIENT
  Sex: Male

DRUGS (2)
  1. GEODON [Suspect]
     Dosage: UNK
  2. HALOPERIDOL [Interacting]
     Dosage: UNK

REACTIONS (3)
  - AMNESIA [None]
  - DRUG INTERACTION [None]
  - GLAUCOMA [None]
